FAERS Safety Report 9523424 (Version 1)
Quarter: 2013Q1

REPORT INFORMATION
  Report Type: Spontaneous
  Country: US (occurrence: None)
  Receive Date: 20130305
  Receipt Date: 20130305
  Transmission Date: 20140127
  Serious: Yes (Other)
  Sender: FDA-Public Use
  Company Number: 163-21880-12012594

PATIENT
  Age: 68 Year
  Sex: Male

DRUGS (9)
  1. REVLIMID [Suspect]
     Indication: CHRONIC LYMPHOCYTIC LEUKAEMIA
     Dosage: 10 MG, QD X 21D/28 DAYS, PO
     Route: 048
     Dates: start: 20120120, end: 20120122
  2. NEUPOGEN (FILGASTIM) (UNKNOWN) [Concomitant]
  3. ACYCLOVIR (ACYCLOVIR) (UNKNOWN) [Concomitant]
  4. SEPTRA DS (BACTRIM) (UNKNOWN) [Concomitant]
  5. LIPITOR (ATORVASTATIN) (UNKNOWN) [Concomitant]
  6. PACKED RED BLOOD CELLS (RED BLOOD CELLS, CONCENTRATED) (UNKNOWN) [Concomitant]
  7. PLATELETS (PLATELETS) (UNKNOWN) [Concomitant]
  8. ANTIBIOTICS (ANTIBIOTICS) (UNKNOWN) [Concomitant]
  9. BENADRYL (DIPHENHYDRAMINE HYDROCHLORIDE) (UNKNOWN) [Concomitant]

REACTIONS (3)
  - Hypoaesthesia [None]
  - Headache [None]
  - Arthralgia [None]
